FAERS Safety Report 18707723 (Version 2)
Quarter: 2021Q1

REPORT INFORMATION
  Report Type: Other
  Country: US (occurrence: US)
  Receive Date: 20210106
  Receipt Date: 20210118
  Transmission Date: 20210419
  Serious: Yes (Other)
  Sender: FDA-Public Use
  Company Number: US-ROCHE-2744760

PATIENT
  Sex: Male

DRUGS (4)
  1. NUTROPIN [Suspect]
     Active Substance: SOMATROPIN
     Indication: HYPOPITUITARISM
     Dosage: FORM STRENGTH: 10 MG/ 2 ML
     Route: 042
     Dates: start: 20190911
  2. NUTROPIN [Suspect]
     Active Substance: SOMATROPIN
  3. NUTROPIN [Suspect]
     Active Substance: SOMATROPIN
  4. NUTROPIN [Suspect]
     Active Substance: SOMATROPIN
     Indication: SHORT STATURE

REACTIONS (3)
  - Rectal haemorrhage [Unknown]
  - Crohn^s disease [Unknown]
  - Colitis [Unknown]
